FAERS Safety Report 21669164 (Version 1)
Quarter: 2022Q4

REPORT INFORMATION
  Report Type: Report from Study
  Country: FR (occurrence: FR)
  Receive Date: 20221201
  Receipt Date: 20221201
  Transmission Date: 20230113
  Serious: Yes (Hospitalization, Other)
  Sender: FDA-Public Use
  Company Number: None

PATIENT
  Age: 62 Year
  Sex: Female
  Weight: 45 kg

DRUGS (17)
  1. DOXAZOSIN [Suspect]
     Active Substance: DOXAZOSIN MESYLATE
     Indication: Product used for unknown indication
     Dosage: 1 TAB IN THE EVENING
  2. ACETAMINOPHEN [Suspect]
     Active Substance: ACETAMINOPHEN
     Indication: Product used for unknown indication
  3. DIFELIKEFALIN [Suspect]
     Active Substance: DIFELIKEFALIN
     Indication: Chronic kidney disease
     Dosage: SOLUTION FOR INJECTION IN PRE-FILLED SYRINGE
     Dates: start: 20220207, end: 20220221
  4. GABAPENTIN [Suspect]
     Active Substance: GABAPENTIN
     Indication: Neuropathic pruritus
     Dates: start: 202201
  5. AMITRIPTYLINE HYDROCHLORIDE [Suspect]
     Active Substance: AMITRIPTYLINE HYDROCHLORIDE
     Indication: Product used for unknown indication
  6. METHOXY POLYETHYLENE GLYCOL-EPOETIN BETA [Suspect]
     Active Substance: METHOXY POLYETHYLENE GLYCOL-EPOETIN BETA
     Indication: Product used for unknown indication
     Dosage: SOLUTION FOR INJECTION IN PRE-FILLED SYRINGE
     Dates: start: 20220114
  7. KAYEXALATE [Concomitant]
     Active Substance: SODIUM POLYSTYRENE SULFONATE
     Indication: Blood potassium
  8. BISOPROLOL [Concomitant]
     Active Substance: BISOPROLOL
     Dosage: 2.5 1/2 CP MORNING,
  9. LOXEN [Concomitant]
     Dosage: 50 1 CP MORNING AND EVENING
  10. PLAVIX [Concomitant]
     Active Substance: CLOPIDOGREL BISULFATE
     Dosage: 75 IN THE EVENING
  11. RILMENIDINE PHOSPHATE [Concomitant]
     Active Substance: RILMENIDINE PHOSPHATE
  12. SPIRONOLACTONE [Concomitant]
     Active Substance: SPIRONOLACTONE
     Dosage: 75 ON EVENING
  13. SODIUM BICARBONATE [Concomitant]
     Active Substance: SODIUM BICARBONATE
  14. TAHOR [Concomitant]
     Active Substance: ATORVASTATIN CALCIUM
     Dosage: 20 IN THE EVENING
  15. VALSARTAN [Concomitant]
     Active Substance: VALSARTAN
     Indication: Chronic kidney disease
  16. METHOXY POLYETHYLENE GLYCOL-EPOETIN BETA [Suspect]
     Active Substance: METHOXY POLYETHYLENE GLYCOL-EPOETIN BETA
     Indication: Product used for unknown indication
     Dosage: SOLUTION FOR INJECTION IN PRE-FILLED SYRINGE
     Dates: start: 20220211
  17. DIFELIKEFALIN [Suspect]
     Active Substance: DIFELIKEFALIN
     Indication: Neuropathic pruritus
     Dates: start: 20220218

REACTIONS (1)
  - Drug reaction with eosinophilia and systemic symptoms [Recovered/Resolved]

NARRATIVE: CASE EVENT DATE: 20220221
